FAERS Safety Report 9902943 (Version 1)
Quarter: 2014Q1

REPORT INFORMATION
  Report Type: Report from Study
  Country: BR (occurrence: BR)
  Receive Date: 20140217
  Receipt Date: 20140217
  Transmission Date: 20141002
  Serious: Yes (Other)
  Sender: FDA-Public Use
  Company Number: PHHY2014BR017030

PATIENT
  Age: 49 Year
  Sex: Male
  Weight: 115 kg

DRUGS (14)
  1. FORASEQ [Suspect]
     Indication: CHRONIC OBSTRUCTIVE PULMONARY DISEASE
     Dosage: 12/400 UG EVERY 12 HOURS
     Dates: start: 20131217
  2. LEVOFLOXACIN [Suspect]
     Indication: SINUSITIS
     Dosage: 1 DF, EVERY 12 HOURS FOR 10 DAYS
     Route: 048
     Dates: start: 20131217
  3. BETAMETHASONE [Suspect]
     Indication: SINUSITIS
     Dosage: 4MG DURING 5 DAYS AND 2 MG MORE 5 DAYS
     Dates: start: 20131217
  4. LOSARTAN [Concomitant]
     Indication: BLOOD PRESSURE INCREASED
     Dosage: 50 MG, EVERY 12 HOURS
     Route: 048
  5. LOSARTAN [Concomitant]
     Dosage: 100 MG, UNK
     Route: 048
     Dates: start: 20131217
  6. ATORVASTATIN [Concomitant]
     Indication: CORONARY ARTERY DISEASE
     Dosage: 10 MG, QD
     Route: 048
  7. FUROSEMIDE [Concomitant]
     Indication: HYPERTENSION
     Dosage: 40 MG, QD
     Route: 048
  8. FUROSEMIDE [Concomitant]
     Indication: CARDIAC FAILURE
  9. SPIRONOLACTONE [Concomitant]
     Dosage: 25 MG, QD
     Route: 048
  10. CARVEDILOL [Concomitant]
     Indication: CARDIAC FAILURE
     Dosage: 12.5 MG, QD
     Route: 048
     Dates: end: 20131217
  11. AMIODARONE [Concomitant]
     Indication: PALPITATIONS
     Dosage: 100 MG, QD
     Route: 048
     Dates: end: 20131217
  12. ASPIRIN [Concomitant]
     Dosage: 100 MG, QD
     Route: 048
  13. BISOPROLOL [Concomitant]
     Indication: CARDIAC FAILURE
     Dosage: 4 MG, QD
     Route: 048
     Dates: start: 20131217
  14. POTASSIUM [Concomitant]
     Indication: CARDIAC FAILURE
     Dosage: UNK
     Route: 048
     Dates: start: 20131217

REACTIONS (26)
  - Pulmonary hilar enlargement [Unknown]
  - Cardiac murmur [Unknown]
  - Cardiac hypertrophy [Unknown]
  - Arrhythmia [Unknown]
  - Blood pressure increased [Recovered/Resolved]
  - Cardiomyopathy [Not Recovered/Not Resolved]
  - Left ventricular dysfunction [Not Recovered/Not Resolved]
  - Myocardial ischaemia [Not Recovered/Not Resolved]
  - Right ventricular dysfunction [Not Recovered/Not Resolved]
  - Mitral valve disease [Not Recovered/Not Resolved]
  - Atrioventricular block [Not Recovered/Not Resolved]
  - Electrocardiogram PR prolongation [Unknown]
  - Electrocardiogram QRS complex prolonged [Unknown]
  - Pneumonia [Unknown]
  - Ventricular extrasystoles [Unknown]
  - Ventricular tachycardia [Unknown]
  - Heart rate increased [Recovered/Resolved]
  - Respiratory rate increased [Recovered/Resolved]
  - Peak expiratory flow rate decreased [Recovering/Resolving]
  - Nasal discharge discolouration [Unknown]
  - Breath sounds abnormal [Unknown]
  - Rhonchi [Unknown]
  - Heart sounds abnormal [Unknown]
  - Cold sweat [Unknown]
  - Lung disorder [Unknown]
  - Oedema peripheral [Unknown]
